FAERS Safety Report 19967800 (Version 1)
Quarter: 2021Q4

REPORT INFORMATION
  Report Type: Spontaneous
  Country: US (occurrence: US)
  Receive Date: 20211015
  Receipt Date: 20211015
  Transmission Date: 20220303
  Serious: Yes (Hospitalization)
  Sender: FDA-Public Use
  Company Number: None

PATIENT
  Age: 73 Year
  Sex: Male
  Weight: 177 kg

DRUGS (1)
  1. CHLORTHALIDONE [Suspect]
     Active Substance: CHLORTHALIDONE
     Indication: Hypertension
     Route: 048
     Dates: start: 20210629, end: 20210707

REACTIONS (4)
  - Hyponatraemia [None]
  - Inappropriate antidiuretic hormone secretion [None]
  - Muscular weakness [None]
  - Balance disorder [None]

NARRATIVE: CASE EVENT DATE: 20210707
